FAERS Safety Report 13280699 (Version 1)
Quarter: 2017Q1

REPORT INFORMATION
  Report Type: Report from Study
  Country: KR (occurrence: KR)
  Receive Date: 20170301
  Receipt Date: 20170301
  Transmission Date: 20170428
  Serious: Yes (Other)
  Sender: FDA-Public Use
  Company Number: KR-CIPLA LTD.-2017KR02335

PATIENT

DRUGS (3)
  1. TENOFOVIR [Suspect]
     Active Substance: TENOFOVIR
     Indication: CHRONIC HEPATITIS B
     Dosage: 300 MG/DAY
     Route: 065
  2. ADEFOVIR [Suspect]
     Active Substance: ADEFOVIR
     Indication: CHRONIC HEPATITIS B
     Dosage: UNK
     Route: 065
  3. ENTECAVIR. [Suspect]
     Active Substance: ENTECAVIR
     Indication: CHRONIC HEPATITIS B
     Dosage: 1 MG/DAY
     Route: 065

REACTIONS (3)
  - Treatment noncompliance [Unknown]
  - Drug resistance [Unknown]
  - Virologic failure [Unknown]
